FAERS Safety Report 10722011 (Version 2)
Quarter: 2015Q2

REPORT INFORMATION
  Report Type: Spontaneous
  Country: US (occurrence: US)
  Receive Date: 20150119
  Receipt Date: 20150506
  Transmission Date: 20150821
  Serious: No
  Sender: FDA-Public Use
  Company Number: US-GLAXOSMITHKLINE-US2014GSK046724

PATIENT
  Sex: Female

DRUGS (5)
  1. CARVEDILOL. [Concomitant]
     Active Substance: CARVEDILOL
  2. LOSARTAN [Concomitant]
     Active Substance: LOSARTAN
  3. PROMACTA [Suspect]
     Active Substance: ELTROMBOPAG OLAMINE
     Indication: IMMUNE THROMBOCYTOPENIC PURPURA
     Dosage: 50 MG, U
     Route: 048
     Dates: start: 201406
  4. TAZEPAM [Concomitant]
  5. OXYBUTIN [Concomitant]
     Active Substance: OXYBUTYNIN

REACTIONS (4)
  - Pain in extremity [Unknown]
  - Carpal tunnel syndrome [Recovered/Resolved]
  - Feeling abnormal [Unknown]
  - Nerve compression [Not Recovered/Not Resolved]
